FAERS Safety Report 4920543-1 (Version None)
Quarter: 2006Q1

REPORT INFORMATION
  Report Type: 
  Country: None (occurrence: None)
  Receive Date: 20060223
  Receipt Date: 20060213
  Transmission Date: 20060701
  Serious: Yes (Other)
  Sender: FDA-Public Use
  Company Number: GB-BRISTOL-MYERS SQUIBB COMPANY-13280078

PATIENT
  Age: 34 Year
  Sex: Male

DRUGS (4)
  1. REYATAZ [Suspect]
     Indication: HIV INFECTION
     Route: 048
     Dates: start: 20040514
  2. RITONAVIR [Concomitant]
     Indication: HIV INFECTION
     Route: 048
     Dates: start: 20040514
  3. LAMIVUDINE [Concomitant]
     Indication: HIV INFECTION
     Route: 048
     Dates: start: 20040107
  4. TENOFOVIR [Concomitant]
     Indication: HIV INFECTION
     Route: 048
     Dates: start: 20040107

REACTIONS (2)
  - NEPHROLITHIASIS [None]
  - PAIN IN EXTREMITY [None]
